FAERS Safety Report 7243574-8 (Version None)
Quarter: 2011Q1

REPORT INFORMATION
  Report Type: 
  Country: None (occurrence: None)
  Receive Date: 20110125
  Receipt Date: 20110113
  Transmission Date: 20110831
  Serious: Yes (Hospitalization)
  Sender: FDA-Public Use
  Company Number: PHHO2011US01127

PATIENT
  Sex: Male
  Weight: 110 kg

DRUGS (12)
  1. CENTRUM [Concomitant]
     Dosage: UNK
  2. FENTANYL CITRATE [Concomitant]
  3. PROZAC [Concomitant]
  4. METOPROLOL [Suspect]
     Indication: HYPERTENSION
     Dosage: 25 MG, BID
     Route: 048
  5. LOVAZA [Concomitant]
  6. OS-CAL D [Concomitant]
  7. ACYCLOVIR [Concomitant]
  8. METFORMIN HCL [Concomitant]
  9. PROCHLORPERAZINE [Concomitant]
  10. IMODIUM [Concomitant]
  11. NEXIUM [Concomitant]
  12. NYSTATIN [Concomitant]

REACTIONS (5)
  - SINUS BRADYCARDIA [None]
  - SYNCOPE [None]
  - ORTHOSTATIC HYPOTENSION [None]
  - ATRIOVENTRICULAR BLOCK FIRST DEGREE [None]
  - BLOOD PRESSURE SYSTOLIC DECREASED [None]
